FAERS Safety Report 14668643 (Version 1)
Quarter: 2018Q1

REPORT INFORMATION
  Report Type: Spontaneous
  Country: IT (occurrence: IT)
  Receive Date: 20180322
  Receipt Date: 20180322
  Transmission Date: 20180509
  Serious: Yes (Hospitalization)
  Sender: FDA-Public Use
  Company Number: IT-ADIENNEP-2017AD000287

PATIENT
  Age: 12 Year
  Sex: Male
  Weight: 35 kg

DRUGS (22)
  1. THIOTEPA. [Suspect]
     Active Substance: THIOTEPA
     Indication: ALLOGENIC BONE MARROW TRANSPLANTATION THERAPY
     Dosage: 173.5 MG DAILY
     Route: 042
     Dates: start: 20160422, end: 20160423
  2. MYCOSTATIN [Concomitant]
     Active Substance: NYSTATIN
     Dosage: 30 ML DAILY
     Dates: start: 20160421, end: 20160626
  3. AMIKACINA [Concomitant]
     Active Substance: AMIKACIN SULFATE
     Dosage: 680 MG DAILY
     Dates: start: 20160427, end: 20160512
  4. DEURSIL [Concomitant]
     Active Substance: URSODIOL
     Dosage: 300 MG DAILY
     Dates: start: 20160421, end: 20160426
  5. TACHIPIRINA [Concomitant]
     Active Substance: ACETAMINOPHEN
     Dosage: 500 MG DAILY
     Dates: start: 20160425, end: 20160427
  6. URBASON [Concomitant]
     Active Substance: METHYLPREDNISOLONE
     Dosage: 35 MG DAILY
     Dates: start: 20160425, end: 20160427
  7. IMMUNOGLOBULINA DI CONIGLIO ANTITIMOCITI UMAN I [Suspect]
     Active Substance: LAPINE T-LYMPHOCYTE IMMUNE GLOBULIN
     Indication: ALLOGENIC BONE MARROW TRANSPLANTATION THERAPY
     Dosage: 69.4 MG DAILY
     Route: 042
     Dates: start: 20160425, end: 20160427
  8. CIPROXIN [Concomitant]
     Active Substance: CIPROFLOXACIN
     Dosage: 1000 MG DAILY
     Dates: start: 20160421, end: 20160423
  9. ALOXI [Concomitant]
     Active Substance: PALONOSETRON HYDROCHLORIDE
     Dosage: 175 MG DAILY
     Dates: start: 20160422, end: 20160424
  10. LASIX [Concomitant]
     Active Substance: FUROSEMIDE
     Dosage: 68 MG DAILY
     Dates: start: 20160421, end: 20160609
  11. ACICLOVIR [Concomitant]
     Active Substance: ACYCLOVIR
     Dosage: 1500 MG DAILY
     Dates: start: 20160428, end: 20160527
  12. CICLOSPORIN [Concomitant]
     Active Substance: CYCLOSPORINE
     Dosage: 140 MG DAILY
     Dates: start: 20160428, end: 20160520
  13. TRIMETON [Concomitant]
     Active Substance: CHLORPHENIRAMINE MALEATE
     Dosage: 14 MG DAILY
     Dates: start: 20160425, end: 20160428
  14. EMEND [Concomitant]
     Active Substance: APREPITANT
     Dates: start: 20160422, end: 20160424
  15. EPARINA [Concomitant]
     Dosage: 3500 LU
     Dates: start: 20160421, end: 20160520
  16. VORICONAZOLE. [Concomitant]
     Active Substance: VORICONAZOLE
     Dosage: 620 MG DAILY
     Dates: start: 20160421, end: 20160512
  17. TAZOCIN [Concomitant]
     Active Substance: PIPERACILLIN SODIUM\TAZOBACTAM SODIUM
     Dosage: 10500 MG DAILY
     Dates: start: 20160423, end: 20160424
  18. RANITIDINE. [Concomitant]
     Active Substance: RANITIDINE
     Dosage: 70 MG DAILY
     Dates: start: 20160422, end: 20160429
  19. BUSILVEX [Suspect]
     Active Substance: BUSULFAN
     Indication: ALLOGENIC BONE MARROW TRANSPLANTATION THERAPY
     Dosage: 111 MG DAILY
     Route: 042
     Dates: start: 20160424, end: 20160426
  20. FLUDARABINE [Suspect]
     Active Substance: FLUDARABINE PHOSPHATE
     Indication: ALLOGENIC BONE MARROW TRANSPLANTATION THERAPY
     Dosage: 59 MG DAILY
     Route: 042
     Dates: start: 20160424, end: 20160426
  21. TEGRETOL [Concomitant]
     Active Substance: CARBAMAZEPINE
     Dosage: 350 MG DAILY
     Dates: start: 20160424, end: 20160427
  22. DIAMINOCILLINA [Concomitant]
     Active Substance: PENICILLIN G BENZATHINE
     Dosage: 1200000 LU DAILY
     Dates: start: 20160421, end: 20160421

REACTIONS (5)
  - Faeces discoloured [Unknown]
  - Mucosal inflammation [Unknown]
  - Faeces soft [Unknown]
  - Cystitis haemorrhagic [Recovering/Resolving]
  - Anaemia [Recovering/Resolving]

NARRATIVE: CASE EVENT DATE: 20160521
